FAERS Safety Report 18767207 (Version 10)
Quarter: 2021Q3

REPORT INFORMATION
  Report Type: Report from Study
  Country: DE (occurrence: DE)
  Receive Date: 20210121
  Receipt Date: 20210728
  Transmission Date: 20211014
  Serious: Yes (Life-Threatening, Hospitalization)
  Sender: FDA-Public Use
  Company Number: DE-EISAI MEDICAL RESEARCH-EC-2021-086690

PATIENT
  Age: 59 Year
  Sex: Male
  Weight: 77 kg

DRUGS (8)
  1. RAMIPRIL. [Concomitant]
     Active Substance: RAMIPRIL
     Dates: start: 201812
  2. LENVATINIB [Suspect]
     Active Substance: LENVATINIB
     Indication: NON-SMALL CELL LUNG CANCER METASTATIC
     Route: 048
     Dates: start: 20201221, end: 20210102
  3. LENVATINIB [Suspect]
     Active Substance: LENVATINIB
     Dosage: STARTING DOSE AT 24MG, FLUCTUATED DOSAGE
     Route: 048
     Dates: start: 20210105
  4. FENTANYL. [Concomitant]
     Active Substance: FENTANYL
     Dosage: EXTENDED RELEASE
     Dates: start: 202010
  5. SPIOLTO RESPIMAT [Concomitant]
     Active Substance: OLODATEROL HYDROCHLORIDE\TIOTROPIUM BROMIDE MONOHYDRATE
     Dates: start: 201904
  6. NOVALGIN (DIPYRONE) [Concomitant]
     Active Substance: DIPYRONE
     Dates: start: 202006
  7. PANTOPRAZOLE [Concomitant]
     Active Substance: PANTOPRAZOLE
     Dates: start: 202004
  8. BISOPROLOL [Concomitant]
     Active Substance: BISOPROLOL
     Dates: start: 201903

REACTIONS (1)
  - Hypertensive crisis [Recovered/Resolved]

NARRATIVE: CASE EVENT DATE: 20210102
